FAERS Safety Report 6620396-X (Version None)
Quarter: 2010Q1

REPORT INFORMATION
  Report Type: 
  Country: None (occurrence: None)
  Receive Date: 20100304
  Receipt Date: 20100222
  Transmission Date: 20100710
  Serious: Yes (Other)
  Sender: FDA-Public Use
  Company Number: DSU-2010-00733

PATIENT
  Age: 68 Year
  Sex: Female
  Weight: 83.0083 kg

DRUGS (6)
  1. WELCHOL [Suspect]
     Indication: HYPERLIPIDAEMIA
     Dosage: 2500 MG (1250 MG,BID), PER ORAL; 2500 MG (1250 MG,BID), PER ORAL
     Route: 048
     Dates: start: 20090901
  2. FISH OIL (FISH OIL)(FISH OIL) [Concomitant]
  3. VITAMIN D3 (COLECALCIFEROL) (COLECALCIFEROL) [Concomitant]
  4. MULTIVITAMIN [Concomitant]
  5. NEURONTIN [Concomitant]
  6. SINGULAIR (MONTELUKAST ) (MONTELUKAST) [Concomitant]

REACTIONS (5)
  - CHOKING [None]
  - EPISTAXIS [None]
  - FATIGUE [None]
  - MIDDLE INSOMNIA [None]
  - MUSCLE SPASMS [None]
